FAERS Safety Report 8962414 (Version 1)
Quarter: 2012Q4

REPORT INFORMATION
  Report Type: 
  Country: DE (occurrence: DE)
  Receive Date: 20121214
  Receipt Date: 20121214
  Transmission Date: 20130627
  Serious: Yes (Death, Hospitalization, Other)
  Sender: FDA-Public Use
  Company Number: PHHY2012DE114214

PATIENT
  Age: 73 Year
  Sex: Male

DRUGS (1)
  1. GLIVEC [Suspect]
     Indication: GASTRIC CANCER
     Dosage: 700 mg, UNK

REACTIONS (7)
  - Death [Fatal]
  - Gastric perforation [Unknown]
  - General physical health deterioration [Unknown]
  - Nausea [Unknown]
  - Diarrhoea [Unknown]
  - Metastases to central nervous system [Unknown]
  - Convulsion [Unknown]
